FAERS Safety Report 20296658 (Version 3)
Quarter: 2022Q1

REPORT INFORMATION
  Report Type: Report from Study
  Country: PL (occurrence: None)
  Receive Date: 20220105
  Receipt Date: 20220124
  Transmission Date: 20220423
  Serious: Yes (Hospitalization)
  Sender: FDA-Public Use
  Company Number: PL-ROCHE-2993095

PATIENT
  Age: 41 Year
  Sex: Male

DRUGS (7)
  1. OCRELIZUMAB [Suspect]
     Active Substance: OCRELIZUMAB
     Indication: Multiple sclerosis
     Dosage: HER MOST RECENT DOSE OF OCRELIZUMAB PRIOR TO THIS SAE ONSET WAS ON: 16/JUL/2021.
     Route: 042
     Dates: start: 20210108
  2. SILDENAFIL [Concomitant]
     Active Substance: SILDENAFIL
     Route: 048
     Dates: start: 20170210
  3. PRESTARIUM CO [Concomitant]
     Route: 048
     Dates: start: 20170801
  4. NUROFEN FORTE [Concomitant]
     Route: 048
     Dates: start: 20180120
  5. COVID-19 VACCINE [Concomitant]
     Dosage: 02/JUN/2021.
     Dates: start: 20210506
  6. METHYLPREDNISOLONE [Concomitant]
     Active Substance: METHYLPREDNISOLONE
     Route: 042
     Dates: start: 20210716, end: 20210716
  7. ZYRTEC (POLAND) [Concomitant]
     Route: 048
     Dates: start: 20210716, end: 20210716

REACTIONS (1)
  - COVID-19 pneumonia [Recovered/Resolved]

NARRATIVE: CASE EVENT DATE: 20211113
